FAERS Safety Report 10079948 (Version 2)
Quarter: 2014Q2

REPORT INFORMATION
  Report Type: Spontaneous
  Country: ES (occurrence: ES)
  Receive Date: 20140415
  Receipt Date: 20140417
  Transmission Date: 20141212
  Serious: Yes (Other)
  Sender: FDA-Public Use
  Company Number: ES-ABBVIE-14P-144-1226286-00

PATIENT
  Age: 29 Year
  Sex: Male

DRUGS (3)
  1. VALPROIC ACID [Suspect]
     Indication: CONVULSION
     Route: 065
  2. PHENYTOIN [Suspect]
     Indication: CONVULSION
     Route: 065
  3. CARBAMAZEPINE [Suspect]
     Indication: CONVULSION
     Route: 065

REACTIONS (9)
  - Drug reaction with eosinophilia and systemic symptoms [Unknown]
  - Rash macular [Unknown]
  - Pruritus [Unknown]
  - Pyrexia [Unknown]
  - Mouth ulceration [Unknown]
  - Dermatitis exfoliative [Unknown]
  - Angioedema [Unknown]
  - Condition aggravated [Unknown]
  - Lymphadenopathy [Unknown]
